FAERS Safety Report 6706284-9 (Version None)
Quarter: 2010Q2

REPORT INFORMATION
  Report Type: 
  Country: None (occurrence: None)
  Receive Date: 20100503
  Receipt Date: 20100421
  Transmission Date: 20101027
  Serious: Yes (Hospitalization)
  Sender: FDA-Public Use
  Company Number: JP-PFIZER INC-2008157511

PATIENT
  Age: 65 Year
  Sex: Male
  Weight: 57.5 kg

DRUGS (9)
  1. SUNITINIB MALATE [Suspect]
     Indication: GASTROINTESTINAL STROMAL TUMOUR
     Dosage: 50 MG, 1X/DAY
     Route: 048
     Dates: start: 20081003, end: 20090813
  2. PARIET [Concomitant]
     Dosage: UNK
     Route: 048
  3. MAGNESIUM OXIDE [Concomitant]
     Dosage: UNK
     Route: 048
  4. GASMOTIN [Concomitant]
     Dosage: UNK
     Route: 048
  5. LAC B [Concomitant]
     Dosage: UNK
     Route: 048
  6. ADONA [Concomitant]
     Route: 048
     Dates: end: 20081101
  7. ONON [Concomitant]
     Dosage: UNK
     Route: 048
  8. METHYCOBAL [Concomitant]
     Dosage: UNK
     Route: 048
     Dates: end: 20081101
  9. LASIX [Concomitant]
     Dosage: UNK
     Route: 048
     Dates: end: 20090313

REACTIONS (3)
  - PLATELET COUNT DECREASED [None]
  - PNEUMONIA [None]
  - TUMOUR LYSIS SYNDROME [None]
